FAERS Safety Report 10211264 (Version 1)
Quarter: 2014Q2

REPORT INFORMATION
  Report Type: Spontaneous
  Country: US (occurrence: US)
  Receive Date: 20140602
  Receipt Date: 20140602
  Transmission Date: 20141212
  Serious: Yes (Other)
  Sender: FDA-Public Use
  Company Number: US-GLAXOSMITHKLINE-A1074777A

PATIENT
  Age: 57 Year
  Sex: Male

DRUGS (3)
  1. LAMICTAL [Suspect]
     Indication: CONVULSION
     Dosage: 500MG PER DAY
     Route: 048
  2. NIFEDIPINE [Suspect]
     Indication: GLAUCOMA
     Dosage: 30MG PER DAY
     Dates: start: 20140525, end: 20140527
  3. NO CONCURRENT MEDICATION [Concomitant]

REACTIONS (3)
  - Normal tension glaucoma [Not Recovered/Not Resolved]
  - Headache [Recovering/Resolving]
  - Fatigue [Unknown]
